FAERS Safety Report 6083725-4 (Version None)
Quarter: 2009Q1

REPORT INFORMATION
  Report Type: 
  Country: None (occurrence: None)
  Receive Date: 20090217
  Receipt Date: 20090217
  Transmission Date: 20090719
  Serious: Yes (Hospitalization)
  Sender: FDA-Public Use
  Company Number: None

PATIENT
  Sex: Female
  Weight: 73 kg

DRUGS (2)
  1. NEUPOGEN [Suspect]
     Indication: NEUTROPENIA
     Dosage: 300 MCG DAILY X 2 SQ
     Route: 058
     Dates: start: 20090115
  2. NEUPOGEN [Suspect]
     Indication: NEUTROPENIA
     Dosage: 300 MCG DAILY X 2 SQ
     Route: 058
     Dates: start: 20090116

REACTIONS (2)
  - CHEST DISCOMFORT [None]
  - CHEST PAIN [None]
